FAERS Safety Report 9051363 (Version 1)
Quarter: 2013Q1

REPORT INFORMATION
  Report Type: Spontaneous
  Country: US (occurrence: US)
  Receive Date: 20130206
  Receipt Date: 20130206
  Transmission Date: 20140127
  Serious: Yes (Hospitalization)
  Sender: FDA-Public Use
  Company Number: US-BAYER-2013-014108

PATIENT
  Age: 23 Year
  Sex: Female
  Weight: 56.24 kg

DRUGS (3)
  1. YAZ [Suspect]
     Indication: CONTRACEPTION
  2. YASMIN [Suspect]
     Indication: MENSTRUAL CYCLE MANAGEMENT
  3. IRON [IRON] [Concomitant]

REACTIONS (2)
  - Axillary vein thrombosis [Recovered/Resolved]
  - Deep vein thrombosis [Recovered/Resolved]
